FAERS Safety Report 25655018 (Version 1)
Quarter: 2025Q3

REPORT INFORMATION
  Report Type: Spontaneous
  Country: US (occurrence: US)
  Receive Date: 20250807
  Receipt Date: 20250807
  Transmission Date: 20251020
  Serious: Yes (Death, Hospitalization, Other)
  Sender: SHILPA MEDICARE
  Company Number: US-KOANAAP-SML-US-2025-00370

PATIENT
  Age: 78 Year
  Sex: Female

DRUGS (20)
  1. IRINOTECAN [Suspect]
     Active Substance: IRINOTECAN
     Indication: Ductal adenocarcinoma of pancreas
  2. IRINOTECAN [Suspect]
     Active Substance: IRINOTECAN
  3. IRINOTECAN [Suspect]
     Active Substance: IRINOTECAN
  4. IRINOTECAN [Suspect]
     Active Substance: IRINOTECAN
  5. LEUCOVORIN [Suspect]
     Active Substance: LEUCOVORIN\LEUCOVORIN CALCIUM
     Indication: Ductal adenocarcinoma of pancreas
  6. LEUCOVORIN [Suspect]
     Active Substance: LEUCOVORIN\LEUCOVORIN CALCIUM
  7. LEUCOVORIN [Suspect]
     Active Substance: LEUCOVORIN\LEUCOVORIN CALCIUM
  8. LEUCOVORIN [Suspect]
     Active Substance: LEUCOVORIN\LEUCOVORIN CALCIUM
  9. FLUOROURACIL [Suspect]
     Active Substance: FLUOROURACIL
     Indication: Ductal adenocarcinoma of pancreas
  10. FLUOROURACIL [Suspect]
     Active Substance: FLUOROURACIL
  11. FLUOROURACIL [Suspect]
     Active Substance: FLUOROURACIL
  12. FLUOROURACIL [Suspect]
     Active Substance: FLUOROURACIL
  13. OXALIPLATIN [Suspect]
     Active Substance: OXALIPLATIN
     Indication: Ductal adenocarcinoma of pancreas
  14. OXALIPLATIN [Suspect]
     Active Substance: OXALIPLATIN
  15. OXALIPLATIN [Suspect]
     Active Substance: OXALIPLATIN
  16. OXALIPLATIN [Suspect]
     Active Substance: OXALIPLATIN
  17. PEGFILGRASTIM [Suspect]
     Active Substance: PEGFILGRASTIM
     Indication: Ductal adenocarcinoma of pancreas
  18. PEGFILGRASTIM [Suspect]
     Active Substance: PEGFILGRASTIM
  19. PEGFILGRASTIM [Suspect]
     Active Substance: PEGFILGRASTIM
  20. PEGFILGRASTIM [Suspect]
     Active Substance: PEGFILGRASTIM

REACTIONS (9)
  - Respiratory failure [Fatal]
  - Multiple organ dysfunction syndrome [Fatal]
  - Acute respiratory distress syndrome [Fatal]
  - Renal failure [Fatal]
  - Oral mucosal blistering [Unknown]
  - Mouth ulceration [Unknown]
  - Respiratory distress [Unknown]
  - Hypersensitivity [Unknown]
  - Interstitial lung disease [Fatal]
